FAERS Safety Report 22173439 (Version 2)
Quarter: 2023Q2

REPORT INFORMATION
  Report Type: Spontaneous
  Country: US (occurrence: US)
  Receive Date: 20230404
  Receipt Date: 20230413
  Transmission Date: 20230722
  Serious: Yes (Death, Other)
  Sender: FDA-Public Use
  Company Number: US-009507513-2303USA010011

PATIENT
  Age: 60 Year
  Sex: Female
  Weight: 64.6 kg

DRUGS (1)
  1. KEYTRUDA [Suspect]
     Active Substance: PEMBROLIZUMAB
     Indication: Uterine cancer
     Dosage: 200 MG EVERY 3 WEEKS
     Route: 042
     Dates: start: 20220722, end: 20221223

REACTIONS (2)
  - Malignant neoplasm progression [Fatal]
  - Surgery [Unknown]

NARRATIVE: CASE EVENT DATE: 20221125
